FAERS Safety Report 8937348 (Version 1)
Quarter: 2012Q4

REPORT INFORMATION
  Report Type: Spontaneous
  Country: US (occurrence: None)
  Receive Date: 20121128
  Receipt Date: 20121128
  Transmission Date: 20130627
  Serious: No
  Sender: FDA-Public Use
  Company Number: None

PATIENT
  Age: 24 Year
  Sex: Male
  Weight: 78.8 kg

DRUGS (5)
  1. KEPPRA [Suspect]
  2. LACOSAMIDE [Concomitant]
  3. LEVETRIACETAM [Concomitant]
  4. LORAZEPAM [Concomitant]
  5. VALPORATE SODIUM [Concomitant]

REACTIONS (4)
  - Muscular weakness [None]
  - Gait disturbance [None]
  - Lethargy [None]
  - Mental impairment [None]
